FAERS Safety Report 24415985 (Version 1)
Quarter: 2024Q4

REPORT INFORMATION
  Report Type: Spontaneous
  Country: US (occurrence: US)
  Receive Date: 20241009
  Receipt Date: 20241009
  Transmission Date: 20250115
  Serious: No
  Sender: CELLTRION
  Company Number: US-CELLTRION INC.-2024US002577

PATIENT

DRUGS (1)
  1. INFLECTRA [Suspect]
     Active Substance: INFLIXIMAB-DYYB
     Indication: Product used for unknown indication
     Dosage: 900 MG INTRAVENOUSLY/INFLECTRA (INFLIXIMAB-DYYB IV) 900 MG (10MG/KG; WEIGHT: 90,99 KG = 910 MG) INFL
     Route: 042

REACTIONS (1)
  - Unevaluable event [Unknown]
